FAERS Safety Report 24084766 (Version 1)
Quarter: 2024Q3

REPORT INFORMATION
  Report Type: Spontaneous
  Country: CN (occurrence: CN)
  Receive Date: 20240712
  Receipt Date: 20240712
  Transmission Date: 20241017
  Serious: Yes (Hospitalization, Other)
  Sender: PFIZER
  Company Number: CN-PFIZER INC-PV202400090105

PATIENT
  Age: 80 Year
  Sex: Male
  Weight: 54 kg

DRUGS (8)
  1. LORBRENA [Suspect]
     Active Substance: LORLATINIB
     Indication: Lung adenocarcinoma stage IV
     Dosage: 100 MG, 1X/DAY
     Route: 048
     Dates: start: 20240423, end: 20240705
  2. CATEQUENTINIB DIHYDROCHLORIDE [Suspect]
     Active Substance: CATEQUENTINIB DIHYDROCHLORIDE
     Indication: Lung adenocarcinoma
     Dosage: 8 MG, 1X/DAY
     Route: 048
     Dates: start: 20240516, end: 20240627
  3. PEMETREXED [Suspect]
     Active Substance: PEMETREXED
     Indication: Lung adenocarcinoma
     Dosage: ONCE
     Dates: start: 20240626
  4. CARBOPLATIN [Suspect]
     Active Substance: CARBOPLATIN
     Indication: Lung adenocarcinoma
     Dosage: ONCE
     Dates: start: 20240626
  5. CRESTOR [Concomitant]
     Active Substance: ROSUVASTATIN CALCIUM
     Indication: Lipids abnormal
     Dosage: 10 MG, 1X/DAY
     Route: 048
     Dates: start: 20240630, end: 20240705
  6. HYDROCHLOROTHIAZIDE\IRBESARTAN [Concomitant]
     Active Substance: HYDROCHLOROTHIAZIDE\IRBESARTAN
     Indication: Hypertension
     Dosage: 150MG/12.5MG, 2 TABLETS, DAILY (QD)
     Route: 048
  7. BISOPROLOL FUMARATE + HCTZ [Concomitant]
     Indication: Hypertension
     Dosage: 1.25 MG
     Route: 048
  8. ISOSORBIDE MONONITRATE [Concomitant]
     Active Substance: ISOSORBIDE MONONITRATE
     Indication: Hypertension
     Dosage: 40 MG, 1X/DAY (SUSTAINED-RELEASE CAPSULES)
     Route: 048

REACTIONS (3)
  - Tachypnoea [Unknown]
  - Haemoptysis [Unknown]
  - Hypertension [Recovering/Resolving]

NARRATIVE: CASE EVENT DATE: 20240629
